FAERS Safety Report 9844086 (Version 2)
Quarter: 2014Q1

REPORT INFORMATION
  Report Type: Spontaneous
  Country: HU (occurrence: HU)
  Receive Date: 20140127
  Receipt Date: 20140325
  Transmission Date: 20141002
  Serious: Yes (Death, Hospitalization, Other)
  Sender: FDA-Public Use
  Company Number: HU-AMGEN-HUNSP2014004747

PATIENT
  Age: 57 Year
  Sex: Female

DRUGS (5)
  1. ENBREL [Suspect]
     Indication: RHEUMATOID ARTHRITIS
     Dosage: 50 MG, WEEKLY
     Route: 058
     Dates: start: 20090430
  2. APRANAX /00256202/ [Suspect]
     Indication: PRODUCT USED FOR UNKNOWN INDICATION
     Dosage: UNK
     Route: 065
     Dates: end: 20140107
  3. TEGRETOL [Concomitant]
     Dosage: UNK
  4. RIVOTRIL [Concomitant]
     Dosage: UNK
  5. METYPRED                           /00049601/ [Concomitant]
     Dosage: OCCASIONALLY

REACTIONS (5)
  - Splenic rupture [Unknown]
  - Gastric haemorrhage [Fatal]
  - Arthralgia [Not Recovered/Not Resolved]
  - Asthenia [Not Recovered/Not Resolved]
  - Splenic abscess [Unknown]
